FAERS Safety Report 15075970 (Version 1)
Quarter: 2018Q2

REPORT INFORMATION
  Report Type: Spontaneous
  Country: FR (occurrence: FR)
  Receive Date: 20180627
  Receipt Date: 20180627
  Transmission Date: 20180711
  Serious: Yes (Hospitalization)
  Sender: FDA-Public Use
  Company Number: FR-TEVA-2018-FR-912040

PATIENT
  Age: 62 Year
  Sex: Female
  Weight: 78 kg

DRUGS (2)
  1. IFOSFAMIDE EG [Suspect]
     Active Substance: IFOSFAMIDE
     Indication: SARCOMA UTERUS
     Route: 042
     Dates: start: 20180430, end: 20180503
  2. DOXORUBICINE TEVA [Suspect]
     Active Substance: DOXORUBICIN
     Indication: SARCOMA UTERUS
     Route: 042
     Dates: start: 20180430, end: 20180503

REACTIONS (1)
  - Myoclonus [Recovered/Resolved]

NARRATIVE: CASE EVENT DATE: 20180504
